FAERS Safety Report 25473422 (Version 1)
Quarter: 2025Q2

REPORT INFORMATION
  Report Type: Spontaneous
  Country: AR (occurrence: AR)
  Receive Date: 20250624
  Receipt Date: 20250624
  Transmission Date: 20250717
  Serious: Yes (Other)
  Sender: PFIZER
  Company Number: AR-PFIZER INC-202500127100

PATIENT
  Age: 20 Month
  Sex: Male

DRUGS (1)
  1. GENOTROPIN [Suspect]
     Active Substance: SOMATROPIN
     Indication: Growth hormone deficiency
     Dosage: 0.3 MG, 1X/DAY
     Dates: start: 20231206

REACTIONS (2)
  - Feeling abnormal [Unknown]
  - Infantile vomiting [Unknown]

NARRATIVE: CASE EVENT DATE: 20250614
